FAERS Safety Report 24249204 (Version 1)
Quarter: 2024Q3

REPORT INFORMATION
  Report Type: Spontaneous
  Country: US (occurrence: US)
  Receive Date: 20240826
  Receipt Date: 20240826
  Transmission Date: 20241016
  Serious: Yes (Life-Threatening, Hospitalization)
  Sender: PFIZER
  Company Number: US-MLMSERVICE-20240813-PI156517-00306-1

PATIENT
  Age: 68 Year
  Sex: Male

DRUGS (2)
  1. METHOTREXATE SODIUM [Suspect]
     Active Substance: METHOTREXATE SODIUM
     Indication: Prophylaxis against graft versus host disease
     Dosage: UNK
  2. TACROLIMUS [Suspect]
     Active Substance: TACROLIMUS
     Indication: Prophylaxis against graft versus host disease
     Dosage: UNK

REACTIONS (9)
  - Periorbital cellulitis [Recovered/Resolved]
  - Sinusitis bacterial [Recovered/Resolved]
  - Staphylococcal infection [Recovered/Resolved]
  - Orbital infection [Recovered/Resolved]
  - Mucormycosis [Recovered/Resolved]
  - Klebsiella infection [Recovered/Resolved]
  - Cellulitis orbital [Recovered/Resolved]
  - Off label use [Unknown]
  - Drug ineffective for unapproved indication [Unknown]
